FAERS Safety Report 7259823-6 (Version None)
Quarter: 2011Q1

REPORT INFORMATION
  Report Type: 
  Country: None (occurrence: None)
  Receive Date: 20110130
  Receipt Date: 20100916
  Transmission Date: 20110831
  Serious: No
  Sender: FDA-Public Use
  Company Number: US-ABBOTT-10P-163-0671174-00

PATIENT
  Age: 58 Year
  Sex: Female

DRUGS (6)
  1. HUMIRA [Suspect]
     Indication: PSORIATIC ARTHROPATHY
     Dates: start: 20070901
  2. MTX [Concomitant]
     Indication: PSORIATIC ARTHROPATHY
     Dosage: 8 TABLETS WEEKLY
  3. ZOCOR [Concomitant]
     Indication: BLOOD CHOLESTEROL INCREASED
  4. FOSAMAX [Concomitant]
     Indication: MINERAL SUPPLEMENTATION
  5. FOLIC ACID [Concomitant]
     Indication: SUPPLEMENTATION THERAPY
  6. LOTREL [Concomitant]
     Indication: HYPERTENSION
     Dosage: 10/20 MG

REACTIONS (6)
  - WRONG TECHNIQUE IN DRUG USAGE PROCESS [None]
  - DRUG DOSE OMISSION [None]
  - INJECTION SITE NODULE [None]
  - INJECTION SITE PAIN [None]
  - INJECTION SITE REACTION [None]
  - DEVICE MALFUNCTION [None]
